APPROVED DRUG PRODUCT: PRAZOSIN HYDROCHLORIDE
Active Ingredient: PRAZOSIN HYDROCHLORIDE
Strength: EQ 1MG BASE
Dosage Form/Route: CAPSULE;ORAL
Application: A213406 | Product #001 | TE Code: AB
Applicant: APPCO PHARMA LLC
Approved: Oct 21, 2022 | RLD: No | RS: No | Type: RX